FAERS Safety Report 14575046 (Version 1)
Quarter: 2018Q1

REPORT INFORMATION
  Report Type: Spontaneous
  Country: US (occurrence: US)
  Receive Date: 20180227
  Receipt Date: 20180227
  Transmission Date: 20180509
  Serious: No
  Sender: FDA-Public Use
  Company Number: US-ROCHE-2008920

PATIENT
  Sex: Male

DRUGS (17)
  1. SPIRIVA [Concomitant]
     Active Substance: TIOTROPIUM BROMIDE MONOHYDRATE
  2. CARISOPRODOL. [Concomitant]
     Active Substance: CARISOPRODOL
  3. BISOPRIL [Concomitant]
  4. CLONIDINE. [Concomitant]
     Active Substance: CLONIDINE
  5. ALBUTEROL. [Concomitant]
     Active Substance: ALBUTEROL
  6. PREDNISONE. [Concomitant]
     Active Substance: PREDNISONE
  7. OMEPRAZOLE. [Concomitant]
     Active Substance: OMEPRAZOLE
  8. PROVENTIL HFA [Concomitant]
     Active Substance: ALBUTEROL SULFATE
  9. SYMBICORT [Concomitant]
     Active Substance: BUDESONIDE\FORMOTEROL FUMARATE DIHYDRATE
  10. CARISOPRODOL. [Concomitant]
     Active Substance: CARISOPRODOL
  11. BENAZEPRIL [Concomitant]
     Active Substance: BENAZEPRIL HYDROCHLORIDE
  12. PERCOCET [Concomitant]
     Active Substance: ACETAMINOPHEN\OXYCODONE HYDROCHLORIDE
  13. XOLAIR [Suspect]
     Active Substance: OMALIZUMAB
     Indication: ASTHMA
     Route: 058
  14. FLUTICASONE. [Concomitant]
     Active Substance: FLUTICASONE
  15. AMLODIPINE [Concomitant]
     Active Substance: AMLODIPINE BESYLATE
  16. GABAPENTINE [Concomitant]
     Active Substance: GABAPENTIN
  17. CEFDINIR. [Concomitant]
     Active Substance: CEFDINIR

REACTIONS (1)
  - Contusion [Not Recovered/Not Resolved]
